FAERS Safety Report 7397025-3 (Version None)
Quarter: 2011Q2

REPORT INFORMATION
  Report Type: 
  Country: None (occurrence: None)
  Receive Date: 20110406
  Receipt Date: 20101026
  Transmission Date: 20111010
  Serious: Yes (Hospitalization, Other)
  Sender: FDA-Public Use
  Company Number: US-BAYER-201025152NA

PATIENT
  Sex: Female
  Weight: 74 kg

DRUGS (6)
  1. TYLENOL PM [Concomitant]
     Indication: INSOMNIA
     Dosage: UNK UNK, PRN
     Dates: start: 20100101, end: 20100401
  2. AFRIN NASAL DECONGESTANT [Concomitant]
     Indication: NASAL CONGESTION
     Dosage: UNK
     Dates: start: 20100504
  3. IBUPROFEN [Concomitant]
     Dosage: 800 MG, UNK
     Route: 048
  4. UNKNOWN [Concomitant]
     Indication: CONSTIPATION
     Dosage: UNK UNK, PRN
     Dates: start: 20100101, end: 20100401
  5. YAZ [Suspect]
     Dosage: UNK
     Route: 048
     Dates: start: 20100120, end: 20100430
  6. AZITHROMYCIN [Concomitant]
     Dosage: 250 MG, UNK
     Route: 048

REACTIONS (7)
  - DEEP VEIN THROMBOSIS [None]
  - OEDEMA PERIPHERAL [None]
  - GASTROOESOPHAGEAL REFLUX DISEASE [None]
  - PULMONARY EMBOLISM [None]
  - DYSPNOEA [None]
  - VESSEL PUNCTURE SITE SWELLING [None]
  - FLUID RETENTION [None]
